FAERS Safety Report 9702038 (Version 2)
Quarter: 2013Q4

REPORT INFORMATION
  Report Type: Spontaneous
  Country: IT (occurrence: None)
  Receive Date: 20131120
  Receipt Date: 20131129
  Transmission Date: 20140711
  Serious: Yes (Other)
  Sender: FDA-Public Use
  Company Number: 2013AP009728

PATIENT
  Age: 27 Year
  Sex: Female

DRUGS (2)
  1. CLARITHROMYCIN [Suspect]
     Indication: PHARYNGITIS
     Route: 048
     Dates: start: 20131007, end: 20131007
  2. PEVARYL [Concomitant]

REACTIONS (4)
  - Drug hypersensitivity [None]
  - Oral pruritus [None]
  - Pruritus generalised [None]
  - Lip oedema [None]
